FAERS Safety Report 6918506-X (Version None)
Quarter: 2010Q3

REPORT INFORMATION
  Report Type: 
  Country: None (occurrence: None)
  Receive Date: 20100811
  Receipt Date: 20100809
  Transmission Date: 20110219
  Serious: Yes (Other)
  Sender: FDA-Public Use
  Company Number: US-ASTRAZENECA-2007UW21531

PATIENT
  Age: 15912 Day
  Sex: Female
  Weight: 125.2 kg

DRUGS (14)
  1. SEROQUEL [Suspect]
     Indication: ANXIETY
     Route: 048
     Dates: start: 20050701, end: 20061122
  2. SEROQUEL [Suspect]
     Indication: DEPRESSION
     Route: 048
     Dates: start: 20050701, end: 20061122
  3. SEROQUEL [Suspect]
     Route: 048
     Dates: start: 20060225, end: 20071201
  4. SEROQUEL [Suspect]
     Route: 048
     Dates: start: 20060225, end: 20071201
  5. SEROQUEL [Suspect]
     Route: 048
     Dates: start: 20060712
  6. SEROQUEL [Suspect]
     Route: 048
     Dates: start: 20060712
  7. ATENOLOL [Concomitant]
     Route: 048
  8. CLONAZEPAM [Concomitant]
     Route: 048
  9. ASPIRIN [Concomitant]
     Route: 048
  10. LIPITOR [Concomitant]
     Route: 048
  11. LISINOPRIL [Concomitant]
     Route: 048
  12. LOVASTATIN [Concomitant]
     Route: 048
  13. AMBIEN [Concomitant]
     Indication: SLEEP DISORDER
     Route: 048
  14. EFFEXOR XR [Concomitant]
     Route: 048

REACTIONS (3)
  - DIABETIC NEUROPATHY [None]
  - TYPE 2 DIABETES MELLITUS [None]
  - WEIGHT INCREASED [None]
